FAERS Safety Report 4649586-2 (Version None)
Quarter: 2005Q2

REPORT INFORMATION
  Report Type: 
  Country: None (occurrence: None)
  Receive Date: 20050428
  Receipt Date: 20050428
  Transmission Date: 20051028
  Serious: Yes (Hospitalization)
  Sender: FDA-Public Use
  Company Number: None

PATIENT
  Age: 37 Year
  Sex: Male
  Weight: 83.4619 kg

DRUGS (1)
  1. UNASYN [Suspect]
     Indication: INFECTION
     Dosage: 3.375  IV
     Route: 042
     Dates: start: 20041231

REACTIONS (6)
  - ANAPHYLACTIC REACTION [None]
  - BLOOD PRESSURE DECREASED [None]
  - DIZZINESS [None]
  - FLUSHING [None]
  - NAUSEA [None]
  - PRURITUS [None]
